FAERS Safety Report 7728136-8 (Version None)
Quarter: 2011Q3

REPORT INFORMATION
  Report Type: 
  Country: None (occurrence: None)
  Receive Date: 20110905
  Receipt Date: 20110822
  Transmission Date: 20111222
  Serious: Yes (Other)
  Sender: FDA-Public Use
  Company Number: US-ACTELION-A-CH2011-53277

PATIENT
  Age: 8 Year
  Sex: Male

DRUGS (1)
  1. TRACLEER [Suspect]
     Indication: PULMONARY ARTERIAL HYPERTENSION
     Route: 048

REACTIONS (4)
  - ANTINUCLEAR ANTIBODY POSITIVE [None]
  - THROMBOTIC THROMBOCYTOPENIC PURPURA [None]
  - SMOOTH MUSCLE ANTIBODY POSITIVE [None]
  - VON WILLEBRAND'S FACTOR ACTIVITY ABNORMAL [None]
